FAERS Safety Report 7551162-9 (Version None)
Quarter: 2011Q2

REPORT INFORMATION
  Report Type: 
  Country: None (occurrence: None)
  Receive Date: 20110616
  Receipt Date: 20110606
  Transmission Date: 20111010
  Serious: Yes (Hospitalization)
  Sender: FDA-Public Use
  Company Number: ES-SANOFI-AVENTIS-2011SA036594

PATIENT
  Age: 16 Year
  Sex: Male

DRUGS (8)
  1. PIRAZINAMIDE [Concomitant]
     Indication: PULMONARY TUBERCULOSIS
     Route: 065
  2. ISONIAZID [Concomitant]
     Route: 065
  3. PIRAZINAMIDE [Concomitant]
     Route: 065
  4. ISONIAZID [Concomitant]
     Indication: PULMONARY TUBERCULOSIS
     Route: 065
  5. RIFAMPICIN [Suspect]
     Indication: PULMONARY TUBERCULOSIS
     Route: 065
  6. RIFAMPICIN [Suspect]
     Route: 065
  7. ETHAMBUTOL HYDROCHLORIDE [Concomitant]
     Indication: PULMONARY TUBERCULOSIS
     Route: 065
  8. ETHAMBUTOL HYDROCHLORIDE [Concomitant]
     Route: 065

REACTIONS (4)
  - PYREXIA [None]
  - RASH [None]
  - EOSINOPHILIA [None]
  - PARADOXICAL DRUG REACTION [None]
